FAERS Safety Report 6941830-1 (Version None)
Quarter: 2010Q3

REPORT INFORMATION
  Report Type: 
  Country: None (occurrence: None)
  Receive Date: 20100826
  Receipt Date: 20100817
  Transmission Date: 20110219
  Serious: Yes (Other)
  Sender: FDA-Public Use
  Company Number: US-PFIZER INC-2010104085

PATIENT
  Sex: Male
  Weight: 63.5 kg

DRUGS (2)
  1. VFEND [Suspect]
     Indication: ASPERGILLOSIS
     Dosage: 400 MG, DAILY
     Route: 048
     Dates: start: 20100721, end: 20100801
  2. PREDNISONE [Concomitant]
     Dosage: UNK

REACTIONS (4)
  - BLISTER [None]
  - BURNING SENSATION [None]
  - HYPERSENSITIVITY [None]
  - RASH GENERALISED [None]
